FAERS Safety Report 11633473 (Version 1)
Quarter: 2015Q4

REPORT INFORMATION
  Report Type: Other
  Country: JP (occurrence: JP)
  Receive Date: 20151015
  Receipt Date: 20151015
  Transmission Date: 20160304
  Serious: Yes (Hospitalization)
  Sender: FDA-Public Use
  Company Number: JP-TRIS PHARMA, INC.-1042997

PATIENT
  Age: 36 Year
  Sex: Female

DRUGS (4)
  1. FAMOTIDINE. [Concomitant]
     Active Substance: FAMOTIDINE
  2. DOMPERIDONE [Concomitant]
     Active Substance: DOMPERIDONE
  3. IBUPROFEN. [Suspect]
     Active Substance: IBUPROFEN
     Indication: HEADACHE
  4. AZULENE SODIUM SULFONATE [Concomitant]
     Active Substance: SODIUM GUALENATE

REACTIONS (5)
  - Pyrexia [Recovered/Resolved]
  - Drug-induced liver injury [Recovered/Resolved]
  - Erythema [Recovered/Resolved]
  - Chromaturia [Recovered/Resolved]
  - Rash [Recovered/Resolved]
